FAERS Safety Report 23237916 (Version 1)
Quarter: 2023Q4

REPORT INFORMATION
  Report Type: Report from Study
  Country: US (occurrence: US)
  Receive Date: 20231128
  Receipt Date: 20231128
  Transmission Date: 20240110
  Serious: Yes (Other)
  Sender: FDA-Public Use
  Company Number: US-ABBVIE-5473870

PATIENT
  Sex: Female

DRUGS (1)
  1. HUMIRA [Suspect]
     Active Substance: ADALIMUMAB
     Indication: Rheumatoid arthritis
     Dosage: HUMIRA  SYRINGE?FORM STRENGTH: 40 MILLIGRAM
     Route: 058
     Dates: start: 20170501

REACTIONS (9)
  - Surgery [Recovering/Resolving]
  - Constipation [Recovered/Resolved]
  - Peripheral nerve injury [Unknown]
  - Spinal disorder [Unknown]
  - Post procedural discharge [Unknown]
  - Loss of consciousness [Unknown]
  - Dizziness [Unknown]
  - Screaming [Unknown]
  - Presyncope [Unknown]

NARRATIVE: CASE EVENT DATE: 20230101
